FAERS Safety Report 6579855-0 (Version None)
Quarter: 2010Q1

REPORT INFORMATION
  Report Type: 
  Country: None (occurrence: None)
  Receive Date: 20100209
  Receipt Date: 20100209
  Transmission Date: 20100710
  Serious: Yes (Other)
  Sender: FDA-Public Use
  Company Number: None

PATIENT
  Age: 62 Year
  Sex: Female
  Weight: 78.9259 kg

DRUGS (1)
  1. MYOVIEW [Suspect]
     Indication: CARDIAC STRESS TEST
     Dosage: ONCE IV
     Route: 042
     Dates: start: 20100213, end: 20100213

REACTIONS (1)
  - NAUSEA [None]
